FAERS Safety Report 10104111 (Version 1)
Quarter: 2014Q2

REPORT INFORMATION
  Report Type: Spontaneous
  Country: GB (occurrence: GB)
  Receive Date: 20140424
  Receipt Date: 20140424
  Transmission Date: 20141212
  Serious: Yes (Other)
  Sender: FDA-Public Use
  Company Number: GB-WATSON-2014-08060

PATIENT
  Age: 57 Year
  Sex: Male
  Weight: 115 kg

DRUGS (4)
  1. SUMATRIPTAN (UNKNOWN) [Suspect]
     Indication: CLUSTER HEADACHE
     Dosage: 6 MG, UNKNOWN
     Route: 058
  2. NAPROXEN [Concomitant]
     Indication: PRODUCT USED FOR UNKNOWN INDICATION
     Dosage: UNK
     Route: 065
  3. OMEPRAZOLE [Concomitant]
     Indication: PRODUCT USED FOR UNKNOWN INDICATION
     Dosage: UNK
     Route: 065
  4. TAMSULOSIN [Concomitant]
     Indication: PRODUCT USED FOR UNKNOWN INDICATION
     Dosage: UNK
     Route: 065

REACTIONS (6)
  - Injection site urticaria [Recovered/Resolved]
  - Injection site swelling [Unknown]
  - Injection site irritation [Unknown]
  - Injection site pruritus [Unknown]
  - Injection site erythema [Unknown]
  - Rash macular [Unknown]
